FAERS Safety Report 4901625-7 (Version None)
Quarter: 2006Q1

REPORT INFORMATION
  Report Type: 
  Country: None (occurrence: None)
  Receive Date: 20060206
  Receipt Date: 20050720
  Transmission Date: 20060701
  Serious: No
  Sender: FDA-Public Use
  Company Number: US-BRISTOL-MYERS SQUIBB COMPANY-13044680

PATIENT
  Age: 51 Year
  Sex: Female
  Weight: 43 kg

DRUGS (4)
  1. TAXOL [Suspect]
     Indication: BREAST CANCER
  2. GEMZAR [Suspect]
     Indication: BREAST CANCER
  3. FOSAMAX [Concomitant]
  4. ARIMIDEX [Concomitant]

REACTIONS (1)
  - LUNG DISORDER [None]
